FAERS Safety Report 9316347 (Version 2)
Quarter: 2013Q3

REPORT INFORMATION
  Report Type: Spontaneous
  Country: IT (occurrence: None)
  Receive Date: 20130522
  Receipt Date: 20130726
  Transmission Date: 20140515
  Serious: Yes (Other)
  Sender: FDA-Public Use
  Company Number: 2013AP005249

PATIENT
  Age: 69 Year
  Sex: Female

DRUGS (10)
  1. LEVOFLOXACIN (LEVOFLOXACIN) [Suspect]
     Route: 048
     Dates: start: 20090101, end: 20130509
  2. IRBESARTAN/HYDROCHLOROTHIAZIDE [Suspect]
     Indication: HYPERTENSION
     Dosage: TAB
     Route: 048
     Dates: start: 20090109, end: 20130509
  3. INSULIN (INSULIN) [Concomitant]
  4. SIMVASTATIN (SIMVASTATIN) [Concomitant]
  5. FERRIC SULFATE (FERRIC SULFATE) [Concomitant]
  6. LERCANDIPINE HYDROCHLORIDE LERCANDIPINE (HYDROCHLORIDE) [Concomitant]
  7. ACETYLSALICYLIC ACID (ACETYLSALICYLIC ACID) [Concomitant]
  8. PARACETAMOL (PARACETAMOL) [Concomitant]
  9. DOXAZOSIN MESILATE (DOXAZOSIN MESILATE) [Concomitant]
  10. LANSOPRAZOLE (LANSOPRAZOLE) [Concomitant]

REACTIONS (2)
  - Renal failure chronic [None]
  - Condition aggravated [None]
